FAERS Safety Report 9183921 (Version 1)
Quarter: 2013Q1

REPORT INFORMATION
  Report Type: Spontaneous
  Country: US (occurrence: US)
  Receive Date: 20130322
  Receipt Date: 20130322
  Transmission Date: 20140127
  Serious: No
  Sender: FDA-Public Use
  Company Number: US-BRISTOL-MYERS SQUIBB COMPANY-16660441

PATIENT
  Age: 81 Year
  Sex: Female
  Weight: 58.05 kg

DRUGS (6)
  1. ERBITUX [Suspect]
     Indication: COLORECTAL CANCER METASTATIC
     Route: 042
     Dates: start: 20120425
  2. CAMPTOSAR [Suspect]
  3. COUMADIN [Concomitant]
  4. LASIX [Concomitant]
  5. VICODIN [Concomitant]
  6. LISINOPRIL [Concomitant]

REACTIONS (2)
  - Dysphonia [Recovered/Resolved]
  - Weight decreased [Unknown]
